FAERS Safety Report 13421442 (Version 2)
Quarter: 2017Q2

REPORT INFORMATION
  Report Type: Report from Study
  Country: GB (occurrence: GB)
  Receive Date: 20170410
  Receipt Date: 20170515
  Transmission Date: 20170830
  Serious: Yes (Hospitalization, Other)
  Sender: FDA-Public Use
  Company Number: GB-BRISTOL-MYERS SQUIBB COMPANY-BMS-2016-088614

PATIENT
  Sex: Female

DRUGS (1)
  1. ABATACEPT [Suspect]
     Active Substance: ABATACEPT
     Indication: RHEUMATOID ARTHRITIS
     Dosage: 125 MG, QWK
     Route: 058
     Dates: start: 20160815

REACTIONS (6)
  - Cystitis [Unknown]
  - Musculoskeletal stiffness [Unknown]
  - Drug dose omission [Unknown]
  - Adverse event [Unknown]
  - Joint stiffness [Unknown]
  - Lower respiratory tract infection [Unknown]
